FAERS Safety Report 14145350 (Version 8)
Quarter: 2019Q1

REPORT INFORMATION
  Report Type: Report from Study
  Country: US (occurrence: US)
  Receive Date: 20171031
  Receipt Date: 20190125
  Transmission Date: 20190417
  Serious: Yes (Other)
  Sender: FDA-Public Use
  Company Number: US-TESARO, INC-US-2017TSO03571

PATIENT
  Age: 76 Year
  Sex: Female

DRUGS (9)
  1. STOOL SOFTENER (DOCUSATE) [Concomitant]
     Active Substance: DOCUSATE
     Indication: PRODUCT USED FOR UNKNOWN INDICATION
     Dosage: UNK
  2. ZEJULA [Suspect]
     Active Substance: NIRAPARIB
     Indication: OVARIAN CANCER
     Dosage: 300 MG, QD
     Route: 048
     Dates: start: 20170930
  3. ZEJULA [Suspect]
     Active Substance: NIRAPARIB
     Dosage: 200 MG, QD
     Route: 048
  4. NEUPOGEN [Concomitant]
     Active Substance: FILGRASTIM
     Indication: PRODUCT USED FOR UNKNOWN INDICATION
     Dosage: UNK
  5. CENTRUM [Concomitant]
     Active Substance: VITAMINS
     Indication: PRODUCT USED FOR UNKNOWN INDICATION
     Dosage: UNK
  6. SINGULAIR [Concomitant]
     Active Substance: MONTELUKAST SODIUM
     Indication: PRODUCT USED FOR UNKNOWN INDICATION
     Dosage: UNK
  7. ZEJULA [Suspect]
     Active Substance: NIRAPARIB
     Dosage: 100 MG, QD
     Route: 048
     Dates: start: 20180930
  8. LABETALOL [Concomitant]
     Active Substance: LABETALOL\LABETALOL HYDROCHLORIDE
     Indication: PRODUCT USED FOR UNKNOWN INDICATION
     Dosage: UNK
  9. PROCRIT [Concomitant]
     Active Substance: ERYTHROPOIETIN
     Indication: PRODUCT USED FOR UNKNOWN INDICATION
     Dosage: UNK

REACTIONS (20)
  - Therapeutic response unexpected [Unknown]
  - Dysgeusia [Unknown]
  - Neuropathy peripheral [Unknown]
  - Blood count abnormal [Recovering/Resolving]
  - Depression [Unknown]
  - Swelling face [Recovered/Resolved]
  - Myalgia [Not Recovered/Not Resolved]
  - Intestinal obstruction [Unknown]
  - Constipation [Not Recovered/Not Resolved]
  - Fatigue [Not Recovered/Not Resolved]
  - Rhinorrhoea [Unknown]
  - Platelet count decreased [Unknown]
  - Ear swelling [Recovered/Resolved]
  - Peripheral swelling [Recovered/Resolved]
  - Eye pruritus [Unknown]
  - Skin burning sensation [Unknown]
  - Asthenia [Unknown]
  - Muscle tightness [Unknown]
  - Pain [Unknown]
  - Arthralgia [Unknown]

NARRATIVE: CASE EVENT DATE: 201711
